FAERS Safety Report 7460430-0 (Version None)
Quarter: 2011Q2

REPORT INFORMATION
  Report Type: 
  Country: None (occurrence: None)
  Receive Date: 20110505
  Receipt Date: 20110427
  Transmission Date: 20111010
  Serious: Yes (Other)
  Sender: FDA-Public Use
  Company Number: B0716120A

PATIENT
  Sex: Female
  Weight: 37 kg

DRUGS (15)
  1. CRAVIT [Concomitant]
     Dosage: 300MG PER DAY
     Route: 048
     Dates: end: 20080410
  2. FLUCONAZOLE [Concomitant]
     Dosage: 200MG PER DAY
     Route: 048
     Dates: end: 20080629
  3. ROHYPNOL [Concomitant]
     Dosage: 1MG PER DAY
     Route: 048
     Dates: end: 20080627
  4. LAC B [Concomitant]
     Dosage: 3G PER DAY
     Route: 048
     Dates: end: 20080402
  5. GRANISETRON HCL [Concomitant]
     Dosage: 6MG PER DAY
     Route: 042
     Dates: end: 20080331
  6. LASTET [Concomitant]
     Indication: STEM CELL TRANSPLANT
     Dosage: 200MG PER DAY
     Route: 042
     Dates: start: 20080327, end: 20080330
  7. PURSENNID [Concomitant]
     Dosage: 24MG PER DAY
     Route: 048
     Dates: end: 20080402
  8. ALKERAN [Suspect]
     Indication: STEM CELL TRANSPLANT
     Dosage: 180MG PER DAY
     Route: 042
     Dates: start: 20080331, end: 20080331
  9. CYMERIN [Concomitant]
     Indication: STEM CELL TRANSPLANT
     Dosage: 300MG PER DAY
     Route: 042
     Dates: start: 20080326, end: 20080326
  10. ZOVIRAX [Concomitant]
     Dosage: 1000MG PER DAY
     Route: 048
     Dates: end: 20080501
  11. MEYLON [Concomitant]
     Dosage: 40ML PER DAY
     Route: 042
     Dates: end: 20080331
  12. CYLOCIDE [Concomitant]
     Indication: STEM CELL TRANSPLANT
     Dosage: 400MG PER DAY
     Route: 042
     Dates: start: 20080327, end: 20080330
  13. GAMOFA [Concomitant]
     Dosage: 40MG PER DAY
     Route: 048
     Dates: end: 20080612
  14. URSO 250 [Concomitant]
     Dosage: 300MG PER DAY
     Route: 048
     Dates: end: 20080501
  15. BLADDERON [Concomitant]
     Dosage: 600MG PER DAY
     Route: 048
     Dates: end: 20080501

REACTIONS (3)
  - CYTOMEGALOVIRUS INFECTION [None]
  - SEPSIS [None]
  - ENTEROCOLITIS [None]
